FAERS Safety Report 4875207-X (Version None)
Quarter: 2006Q1

REPORT INFORMATION
  Report Type: 
  Country: None (occurrence: None)
  Receive Date: 20060109
  Receipt Date: 20050715
  Transmission Date: 20060701
  Serious: Yes (Hospitalization)
  Sender: FDA-Public Use
  Company Number: US-MERCK-0507USA02383

PATIENT
  Age: 72 Year
  Sex: Female
  Weight: 101 kg

DRUGS (11)
  1. VIOXX [Suspect]
     Indication: ARTHRITIS
     Route: 048
     Dates: start: 20000501, end: 20040204
  2. VIOXX [Suspect]
     Route: 048
     Dates: start: 20040205, end: 20040309
  3. VIOXX [Suspect]
     Route: 048
     Dates: start: 20040310
  4. PREMARIN [Concomitant]
     Route: 065
     Dates: start: 20001101
  5. XENICAL [Concomitant]
     Route: 065
     Dates: start: 20000501, end: 20020101
  6. MERIDIA [Concomitant]
     Route: 065
     Dates: start: 20020201
  7. MORPHINE [Concomitant]
     Route: 065
  8. MEPREDNISONE [Concomitant]
     Route: 065
  9. ATENOLOL [Concomitant]
     Route: 065
  10. FUROSEMIDE [Concomitant]
     Route: 065
  11. POTASSIUM (UNSPECIFIED) [Concomitant]
     Route: 065

REACTIONS (19)
  - ABDOMINAL HERNIA [None]
  - ACUTE MYOCARDIAL INFARCTION [None]
  - ASTHENIA [None]
  - BACK PAIN [None]
  - CARDIAC FAILURE CONGESTIVE [None]
  - CHEST PAIN [None]
  - COUGH [None]
  - DIZZINESS [None]
  - DYSPNOEA [None]
  - FATIGUE [None]
  - HIRSUTISM [None]
  - HYPERCHOLESTEROLAEMIA [None]
  - HYPERTENSION [None]
  - MUSCULOSKELETAL CHEST PAIN [None]
  - OEDEMA PERIPHERAL [None]
  - SWELLING [None]
  - UMBILICAL HERNIA [None]
  - VENTRICULAR HYPERTROPHY [None]
  - WEIGHT INCREASED [None]
